FAERS Safety Report 20597885 (Version 1)
Quarter: 2022Q1

REPORT INFORMATION
  Report Type: Report from Study
  Country: MX (occurrence: MX)
  Receive Date: 20220315
  Receipt Date: 20220315
  Transmission Date: 20220424
  Serious: Yes (Other)
  Sender: FDA-Public Use
  Company Number: MX-NOVARTISPH-NVSC2022MX059445

PATIENT
  Age: 48 Year
  Sex: Female

DRUGS (2)
  1. KISQALI [Suspect]
     Active Substance: RIBOCICLIB
     Indication: Bone cancer
     Dosage: UNK
     Route: 048
     Dates: start: 202112
  2. FEMARA [Suspect]
     Active Substance: LETROZOLE
     Indication: Bone cancer
     Dosage: UNK
     Route: 065
     Dates: start: 202112

REACTIONS (4)
  - Throat cancer [Unknown]
  - Second primary malignancy [Unknown]
  - Dysphonia [Unknown]
  - Product use in unapproved indication [Unknown]

NARRATIVE: CASE EVENT DATE: 20211201
